FAERS Safety Report 8543742-9 (Version None)
Quarter: 2012Q2

REPORT INFORMATION
  Report Type: 
  Country: None (occurrence: None)
  Receive Date: 20120416
  Receipt Date: 20091201
  Transmission Date: 20120825
  Serious: Yes (Hospitalization)
  Sender: FDA-Public Use
  Company Number: PHEH2009US10919

PATIENT
  Sex: Male

DRUGS (8)
  1. EFFEXOR XR [Concomitant]
  2. ASPIRIN [Concomitant]
  3. WARFARIN SODIUM [Concomitant]
  4. EXELON [Suspect]
     Indication: DEMENTIA ALZHEIMER'S TYPE
     Dosage: 4.6 MG, TRANSDERMAL ; 9.5 MG, TRANSDERMAL
     Route: 062
     Dates: start: 20090722
  5. EXELON [Suspect]
     Indication: DEMENTIA ALZHEIMER'S TYPE
     Dosage: 4.6 MG, TRANSDERMAL ; 9.5 MG, TRANSDERMAL
     Route: 062
     Dates: end: 20091008
  6. DIGOXIN [Concomitant]
  7. LIPITOR [Concomitant]
  8. LASIX [Concomitant]

REACTIONS (3)
  - UPPER GASTROINTESTINAL HAEMORRHAGE [None]
  - GASTRITIS [None]
  - DRUG INEFFECTIVE [None]
